FAERS Safety Report 14177949 (Version 2)
Quarter: 2017Q4

REPORT INFORMATION
  Report Type: Spontaneous
  Country: US (occurrence: US)
  Receive Date: 20171110
  Receipt Date: 20171124
  Transmission Date: 20180321
  Serious: Yes (Other)
  Sender: FDA-Public Use
  Company Number: US-BRISTOL-MYERS SQUIBB COMPANY-BMS-2017-099691

PATIENT
  Sex: Male

DRUGS (1)
  1. ABILIFY [Suspect]
     Active Substance: ARIPIPRAZOLE
     Indication: MAJOR DEPRESSION
     Dosage: 2 MG, QD
     Route: 065
     Dates: start: 201301, end: 201307

REACTIONS (11)
  - Suicidal ideation [Unknown]
  - Psychosexual disorder [Unknown]
  - Emotional distress [Unknown]
  - Injury [Unknown]
  - Weight increased [Unknown]
  - Gambling [Unknown]
  - Obsessive-compulsive disorder [Unknown]
  - Impulsive behaviour [Unknown]
  - Suicide attempt [Unknown]
  - Brain injury [Unknown]
  - Mental disorder [Unknown]
